FAERS Safety Report 6579516-8 (Version None)
Quarter: 2010Q1

REPORT INFORMATION
  Report Type: 
  Country: None (occurrence: None)
  Receive Date: 20100212
  Receipt Date: 20100201
  Transmission Date: 20100710
  Serious: Yes (Hospitalization)
  Sender: FDA-Public Use
  Company Number: US-GENZYME-THYM-1001357

PATIENT
  Sex: Male
  Weight: 90.6 kg

DRUGS (41)
  1. THYMOGLOBULIN [Suspect]
     Indication: BONE MARROW CONDITIONING REGIMEN
     Dosage: 47 MG, UNK
     Route: 042
     Dates: start: 20100124, end: 20100124
  2. BUSULFAN [Concomitant]
     Indication: BONE MARROW CONDITIONING REGIMEN
     Dosage: 454 MG, UNK
     Route: 042
     Dates: start: 20100122, end: 20100123
  3. BUSULFAN [Concomitant]
     Dosage: 430 MG, UNK
     Route: 042
     Dates: start: 20100124, end: 20100125
  4. FLUDARABINE [Concomitant]
     Indication: BONE MARROW CONDITIONING REGIMEN
     Dosage: 67 MG, UNK
     Route: 042
     Dates: start: 20100122, end: 20100125
  5. CLOFARABINE [Concomitant]
     Indication: BONE MARROW CONDITIONING REGIMEN
     Dosage: 22 MG, UNK
     Route: 042
     Dates: start: 20100122, end: 20100125
  6. ALUMINIUM HYDROXIDE GEL [Concomitant]
     Indication: DRUG USE FOR UNKNOWN INDICATION
     Dosage: 30 ML, Q4HR
     Route: 048
  7. CEFEPIME HYDROCHLORIDE [Concomitant]
     Indication: DRUG USE FOR UNKNOWN INDICATION
     Dosage: 2 G, UNK
     Route: 042
  8. CLOTRIMAZOLE [Concomitant]
     Indication: DRUG USE FOR UNKNOWN INDICATION
     Dosage: 10 MG, UNK
     Route: 048
  9. EMOLLIENTS AND PROTECTIVES [Concomitant]
     Indication: DRUG USE FOR UNKNOWN INDICATION
     Dosage: 1 UNK, UNK
     Route: 061
  10. FAMOTIDINE [Concomitant]
     Indication: DRUG USE FOR UNKNOWN INDICATION
     Dosage: 40 MG, QD
     Route: 048
  11. FILGRASTIM [Concomitant]
     Indication: DRUG USE FOR UNKNOWN INDICATION
     Dosage: 480 MCG, QD
     Route: 058
  12. HYDROCORTISONE SODIUM SUCCINATE [Concomitant]
     Indication: DRUG USE FOR UNKNOWN INDICATION
     Dosage: 25 MG, UNK
     Route: 042
  13. LEVOFLOXACIN [Concomitant]
     Indication: DRUG USE FOR UNKNOWN INDICATION
     Dosage: 500 MG, QD
     Route: 048
  14. LOPERAMIDE [Concomitant]
     Indication: DRUG USE FOR UNKNOWN INDICATION
     Dosage: 4 MG, PRN
     Route: 048
  15. LOPERAMIDE [Concomitant]
     Dosage: 2 MG, PRN
     Route: 048
  16. MAGNESIUM SULFATE [Concomitant]
     Indication: DRUG USE FOR UNKNOWN INDICATION
     Dosage: 40 MEQ, QD
     Route: 042
  17. MAGNESIUM SULFATE [Concomitant]
     Dosage: 4 G, PRN
     Route: 042
  18. MAGNESIUM SULFATE [Concomitant]
     Dosage: 2 G, PRN
     Route: 042
  19. METHOTREXATE [Concomitant]
     Indication: DRUG USE FOR UNKNOWN INDICATION
     Dosage: 11 MG, UNK
     Route: 042
  20. METHOTREXATE [Concomitant]
     Dosage: 11 MG, UNK
     Route: 042
  21. ONDANSETRON HYDROCHLORIDE [Concomitant]
     Indication: DRUG USE FOR UNKNOWN INDICATION
     Dosage: 8 MG, UNK
     Route: 042
  22. PHYTONADIONE [Concomitant]
     Indication: DRUG USE FOR UNKNOWN INDICATION
     Dosage: 10 MG, UNK
     Route: 048
  23. POTASSIUM CHLORIDE [Concomitant]
     Indication: DRUG USE FOR UNKNOWN INDICATION
     Dosage: 40 MG, PRN
     Route: 042
  24. POTASSIUM CHLORIDE [Concomitant]
     Dosage: 40 MG, PRN
     Route: 042
  25. POTASSIUM PHOSPHATE DIBASIC [Concomitant]
     Indication: DRUG USE FOR UNKNOWN INDICATION
     Dosage: 30 MMOL, PRN
     Route: 042
  26. PROMETHAZINE [Concomitant]
     Indication: DRUG USE FOR UNKNOWN INDICATION
     Dosage: 12.5 MG, UNK
     Route: 042
  27. PROPOXYPHENE HYDROCHLORIDE [Concomitant]
     Indication: DRUG USE FOR UNKNOWN INDICATION
     Dosage: 130 MG, Q4HR
     Route: 048
  28. SENOKOT [Concomitant]
     Indication: DRUG USE FOR UNKNOWN INDICATION
     Dosage: 2 UNK, BID
     Route: 048
  29. SENOKOT [Concomitant]
     Dosage: 1 UNK, BID
     Route: 048
  30. SIMETHICONE [Concomitant]
     Indication: DRUG USE FOR UNKNOWN INDICATION
     Dosage: 80 MG, UNK
     Route: 048
  31. SODIUM CHLORIDE [Concomitant]
     Indication: DRUG USE FOR UNKNOWN INDICATION
     Dosage: 1000 ML, QD
     Route: 042
  32. SODIUM CHLORIDE [Concomitant]
     Dosage: 10 ML, PRN
     Route: 042
  33. SODIUM CHLORIDE [Concomitant]
     Dosage: 250 ML, PRN
     Route: 042
  34. SODIUM PHOSPHATE [Concomitant]
     Indication: DRUG USE FOR UNKNOWN INDICATION
     Dosage: 30 MMOL, PRN
     Route: 042
  35. SUCRALFATE [Concomitant]
     Indication: DRUG USE FOR UNKNOWN INDICATION
     Dosage: 1000 MG, QID
     Route: 048
  36. TACROLIMUS [Concomitant]
     Indication: DRUG USE FOR UNKNOWN INDICATION
     Dosage: 1.4 MG, QD
     Route: 042
  37. VALACYCLOVIR [Concomitant]
     Indication: DRUG USE FOR UNKNOWN INDICATION
     Dosage: 500 MG, QD
     Route: 048
  38. VANCOMYCIN HCL [Concomitant]
     Indication: DRUG USE FOR UNKNOWN INDICATION
     Dosage: 1 G, UNK
     Route: 042
  39. VORICONAZOLE [Concomitant]
     Indication: DRUG USE FOR UNKNOWN INDICATION
     Dosage: 200 MG, BID
     Route: 048
  40. WHITE PETROLEUM [Concomitant]
     Indication: DRUG USE FOR UNKNOWN INDICATION
     Dosage: 91 G, PRN
     Route: 061
  41. ZOLPIDEM TARTRATE [Concomitant]
     Indication: DRUG USE FOR UNKNOWN INDICATION
     Dosage: 5 MG, UNK
     Route: 048

REACTIONS (1)
  - HYPERSENSITIVITY [None]
